FAERS Safety Report 9224396 (Version 1)
Quarter: 2013Q2

REPORT INFORMATION
  Report Type: Spontaneous
  Country: US (occurrence: None)
  Receive Date: 20130409
  Receipt Date: 20130409
  Transmission Date: 20140414
  Serious: Yes (Life-Threatening)
  Sender: FDA-Public Use
  Company Number: None

PATIENT
  Age: 65 Year
  Sex: Female
  Weight: 52.16 kg

DRUGS (2)
  1. TRAMADOL [Suspect]
     Indication: BACK PAIN
     Dosage: 2 TAB
     Dates: start: 20130321
  2. TRAMADOL [Suspect]
     Indication: INTERVERTEBRAL DISC DISORDER
     Dosage: 2 TAB
     Dates: start: 20130321

REACTIONS (5)
  - Blood pressure increased [None]
  - Incoherent [None]
  - Dizziness [None]
  - Nausea [None]
  - Vomiting [None]
